FAERS Safety Report 5894832-0 (Version None)
Quarter: 2008Q3

REPORT INFORMATION
  Report Type: 
  Country: None (occurrence: None)
  Receive Date: 20080924
  Receipt Date: 20080912
  Transmission Date: 20090109
  Serious: Yes (Death, Other)
  Sender: FDA-Public Use
  Company Number: JP-NOVOPROD-279492

PATIENT
  Age: 79 Year
  Sex: Male
  Weight: 56 kg

DRUGS (2)
  1. NOVOSEVEN [Suspect]
     Indication: ACQUIRED HAEMOPHILIA
     Dosage: 24 MG, QD
     Route: 042
     Dates: start: 20080911
  2. NOVOSEVEN [Suspect]
     Dosage: UNK, UNK
     Route: 042
     Dates: start: 20080912

REACTIONS (1)
  - PORTAL VEIN THROMBOSIS [None]
